FAERS Safety Report 14680422 (Version 1)
Quarter: 2018Q1

REPORT INFORMATION
  Report Type: Spontaneous
  Country: US (occurrence: US)
  Receive Date: 20180326
  Receipt Date: 20180326
  Transmission Date: 20180509
  Serious: No
  Sender: FDA-Public Use
  Company Number: US-BAYER-2018-054547

PATIENT
  Age: 83 Year
  Sex: Female
  Weight: 107 kg

DRUGS (1)
  1. ALEVE [Suspect]
     Active Substance: NAPROXEN SODIUM
     Indication: PAIN
     Dosage: 2 DF, 2 CAPLETS ONE TIME ONLY
     Route: 048
     Dates: start: 20180320

REACTIONS (2)
  - Product container seal issue [None]
  - Expired product administered [Unknown]

NARRATIVE: CASE EVENT DATE: 20180320
